FAERS Safety Report 17820627 (Version 1)
Quarter: 2020Q2

REPORT INFORMATION
  Report Type: Spontaneous
  Country: CA (occurrence: CA)
  Receive Date: 20200525
  Receipt Date: 20200525
  Transmission Date: 20200714
  Serious: Yes (Other)
  Sender: FDA-Public Use
  Company Number: CA-PFIZER INC-2020204909

PATIENT
  Age: 57 Year
  Sex: Female
  Weight: 76 kg

DRUGS (1)
  1. DOCETAXEL. [Suspect]
     Active Substance: DOCETAXEL
     Indication: BREAST CANCER
     Dosage: 185 MG, SINGLE
     Route: 042

REACTIONS (12)
  - Mucosal inflammation [Recovered/Resolved]
  - Peripheral swelling [Recovered/Resolved]
  - Sensitive skin [Recovered/Resolved]
  - Diarrhoea [Recovered/Resolved]
  - Skin exfoliation [Recovered/Resolved]
  - Erythema [Recovered/Resolved]
  - Gastrointestinal pain [Recovered/Resolved]
  - Fluid intake reduced [Recovered/Resolved]
  - Nail disorder [Recovered/Resolved]
  - Paraesthesia [Recovered/Resolved]
  - Dehydration [Recovered/Resolved]
  - Feeding disorder [Recovered/Resolved]
